FAERS Safety Report 11347082 (Version 1)
Quarter: 2015Q3

REPORT INFORMATION
  Report Type: Spontaneous
  Country: US (occurrence: US)
  Receive Date: 20150803
  Receipt Date: 20150803
  Transmission Date: 20151125
  Serious: Yes (Other)
  Sender: FDA-Public Use
  Company Number: US-ELI_LILLY_AND_COMPANY-US201103007184

PATIENT

DRUGS (2)
  1. ZYPREXA [Suspect]
     Active Substance: OLANZAPINE
     Dosage: UNK, UNKNOWN
  2. ZYPREXA [Suspect]
     Active Substance: OLANZAPINE
     Dosage: 90 DF, QD

REACTIONS (1)
  - Overdose [Unknown]
